FAERS Safety Report 5777970-2 (Version None)
Quarter: 2008Q2

REPORT INFORMATION
  Report Type: 
  Country: None (occurrence: None)
  Receive Date: 20080617
  Receipt Date: 20080617
  Transmission Date: 20081010
  Serious: No
  Sender: FDA-Public Use
  Company Number: None

PATIENT
  Sex: Female
  Weight: 86.2 kg

DRUGS (2)
  1. DOCETAXEL [Suspect]
     Indication: OVARIAN CANCER
     Dosage: 75 MG/M2  DAY 8  IV DRIP (EVERY 21 DAYS)
     Route: 041
     Dates: start: 20080414, end: 20080603
  2. GEMCITABINE [Suspect]
     Indication: OVARIAN CANCER
     Dosage: 800 MG/M2  DAY 1,8  IV DRIP (EVERY 21 DAYS)
     Route: 041
     Dates: start: 20080421, end: 20080603

REACTIONS (1)
  - DIARRHOEA [None]
